FAERS Safety Report 15769631 (Version 1)
Quarter: 2018Q4

REPORT INFORMATION
  Report Type: Spontaneous
  Country: US (occurrence: US)
  Receive Date: 20181221
  Receipt Date: 20181221
  Transmission Date: 20190205
  Serious: No
  Sender: FDA-Public Use
  Company Number: None

PATIENT
  Age: 32 Year
  Sex: Female

DRUGS (1)
  1. GLATIRAMER 20MG PFS INJ (30/BOX) [Suspect]
     Active Substance: GLATIRAMER
     Route: 058
     Dates: end: 201811

REACTIONS (3)
  - Swelling [None]
  - Injection site pain [None]
  - Burning sensation [None]

NARRATIVE: CASE EVENT DATE: 20181221
